FAERS Safety Report 9335602 (Version 3)
Quarter: 2014Q1

REPORT INFORMATION
  Report Type: Spontaneous
  Country: US (occurrence: US)
  Receive Date: 20130605
  Receipt Date: 20140116
  Transmission Date: 20141002
  Serious: Yes (Other)
  Sender: FDA-Public Use
  Company Number: US-PFIZER INC-2013165920

PATIENT
  Sex: Female

DRUGS (2)
  1. VIRACEPT [Suspect]
     Indication: HIV INFECTION
     Dosage: 2500 MG/DAY
     Route: 064
     Dates: start: 20130521
  2. COMBIVIR [Suspect]
     Indication: HIV INFECTION
     Dosage: 2 DF/DAY
     Route: 064
     Dates: start: 20130521

REACTIONS (2)
  - Stillbirth [Unknown]
  - Maternal exposure during pregnancy [Unknown]
